FAERS Safety Report 6021227-1 (Version None)
Quarter: 2008Q4

REPORT INFORMATION
  Report Type: 
  Country: None (occurrence: None)
  Receive Date: 20081229
  Receipt Date: 20081218
  Transmission Date: 20090506
  Serious: Yes (Hospitalization)
  Sender: FDA-Public Use
  Company Number: DE-WYE-H07409408

PATIENT
  Sex: Male

DRUGS (2)
  1. CORDAREX [Suspect]
     Dosage: UNKNOWN
     Route: 065
     Dates: end: 20080101
  2. CARBIMAZOLE [Suspect]
     Indication: HYPERTHYROIDISM
     Dosage: UNKNOWN
     Route: 048

REACTIONS (3)
  - ARRHYTHMIA [None]
  - HYPERTHYROIDISM [None]
  - LEUKOCYTOSIS [None]
